FAERS Safety Report 6309655-8 (Version None)
Quarter: 2009Q3

REPORT INFORMATION
  Report Type: 
  Country: None (occurrence: None)
  Receive Date: 20090814
  Receipt Date: 20090806
  Transmission Date: 20100115
  Serious: Yes (Other)
  Sender: FDA-Public Use
  Company Number: JP-BRISTOL-MYERS SQUIBB COMPANY-14733067

PATIENT
  Age: 11 Year
  Sex: Male

DRUGS (7)
  1. VEPESID [Suspect]
     Indication: MEDULLOBLASTOMA
     Route: 042
  2. CYCLOPHOSPHAMIDE [Suspect]
     Indication: MEDULLOBLASTOMA
  3. CISPLATIN [Suspect]
     Indication: MEDULLOBLASTOMA
     Dosage: FORM = INJ
  4. VINCRISTINE SULFATE [Suspect]
     Indication: MEDULLOBLASTOMA
     Dosage: FORM = INJ
     Route: 042
  5. METHOTREXATE [Suspect]
     Indication: MEDULLOBLASTOMA
  6. MELPHALAN HYDROCHLORIDE [Suspect]
     Indication: MEDULLOBLASTOMA
  7. THIOTEPA [Suspect]
     Indication: MEDULLOBLASTOMA
     Dosage: FORM = INJ

REACTIONS (1)
  - BONE SARCOMA [None]
